FAERS Safety Report 25741979 (Version 1)
Quarter: 2025Q3

REPORT INFORMATION
  Report Type: Spontaneous
  Country: US (occurrence: None)
  Receive Date: 20250829
  Receipt Date: 20250829
  Transmission Date: 20251021
  Serious: Yes (Life-Threatening, Hospitalization, Disabling, Other)
  Sender: FDA-CTU
  Company Number: None

PATIENT
  Age: 79 Year
  Sex: Female
  Weight: 57.61 kg

DRUGS (14)
  1. FORTEO [Suspect]
     Active Substance: TERIPARATIDE
     Indication: Osteoporosis
     Dosage: OTHER QUANTITY : 1 INJECTION PER DAY?FREQUENCY : DAILY?OTHER ROUTE : INJECTION IN STOMACH?
     Route: 050
     Dates: start: 20250117, end: 20250118
  2. CLOBETASOL [Concomitant]
     Active Substance: CLOBETASOL
  3. CLONIDINE [Concomitant]
     Active Substance: CLONIDINE
  4. EZETIMIBE [Concomitant]
     Active Substance: EZETIMIBE
  5. OLMESARTAN [Concomitant]
     Active Substance: OLMESARTAN
  6. Rosuvatatin [Concomitant]
  7. TRIAMCINOLONE [Concomitant]
     Active Substance: TRIAMCINOLONE
  8. Caltrade 600 + D3 [Concomitant]
  9. MINERALS\VITAMINS [Concomitant]
     Active Substance: MINERALS\VITAMINS
  10. CLARITIN [Concomitant]
     Active Substance: LORATADINE
  11. Jarrodopnilus probiotics [Concomitant]
  12. Nut rafol Collagen [Concomitant]
  13. Ultinate Omega [Concomitant]
  14. Uiviscal hair supplement [Concomitant]

REACTIONS (3)
  - Palpitations [None]
  - Blood pressure increased [None]
  - Therapy cessation [None]

NARRATIVE: CASE EVENT DATE: 20250118
